FAERS Safety Report 5607497-X (Version None)
Quarter: 2008Q1

REPORT INFORMATION
  Report Type: 
  Country: None (occurrence: None)
  Receive Date: 20080125
  Receipt Date: 20080118
  Transmission Date: 20080703
  Serious: Yes (Life-Threatening, Hospitalization, Other)
  Sender: FDA-Public Use
  Company Number: 08012383

PATIENT
  Age: 37 Month
  Sex: Female

DRUGS (7)
  1. CARBAMAZEPINE [Suspect]
     Indication: COMPLEX PARTIAL SEIZURES
     Dosage: 400MG, BID, ORAL
     Route: 048
  2. LAMOTRIGINE [Concomitant]
  3. PHENOBARBITAL (PHENOBARBITONE) [Concomitant]
  4. KEPPRA [Concomitant]
  5. ALPRAZOLAM [Concomitant]
  6. VENLAFAXINE HCL [Concomitant]
  7. MIRTAZAPINE [Concomitant]

REACTIONS (5)
  - BLOOD CHLORIDE DECREASED [None]
  - INAPPROPRIATE ANTIDIURETIC HORMONE SECRETION [None]
  - LEUKOCYTOSIS [None]
  - NEUTROPHILIA [None]
  - SYNCOPE [None]
